FAERS Safety Report 7332411-9 (Version None)
Quarter: 2011Q1

REPORT INFORMATION
  Report Type: 
  Country: None (occurrence: None)
  Receive Date: 20110304
  Receipt Date: 20110225
  Transmission Date: 20110831
  Serious: Yes (Other)
  Sender: FDA-Public Use
  Company Number: US-JNJFOC-20110300909

PATIENT
  Sex: Female
  Weight: 111.13 kg

DRUGS (8)
  1. VALPROIC ACID [Concomitant]
     Indication: AFFECTIVE DISORDER
     Route: 048
  2. DIOVAN [Concomitant]
     Indication: BLOOD PRESSURE
     Dosage: 40MG/ TABLET 80MG/ 1/2 TABLET DAILY
     Route: 048
  3. LOPID [Concomitant]
     Indication: BLOOD CHOLESTEROL INCREASED
     Route: 048
  4. TRAZODONE [Concomitant]
     Indication: DEPRESSION
     Dosage: AT BEDTIME
     Route: 048
  5. RISPERDAL CONSTA [Suspect]
     Indication: SCHIZOAFFECTIVE DISORDER BIPOLAR TYPE
     Route: 030
  6. LEXAPRO [Concomitant]
     Indication: DEPRESSION
     Route: 048
  7. SYNTHROID [Concomitant]
     Indication: THYROID DISORDER
     Route: 048
  8. SONATA [Concomitant]
     Indication: INSOMNIA
     Dosage: AT BEDTIME
     Route: 048

REACTIONS (6)
  - ARTHRITIS [None]
  - BLOOD CHOLESTEROL INCREASED [None]
  - ADVERSE EVENT [None]
  - DRUG DOSE OMISSION [None]
  - BLOOD TRIGLYCERIDES INCREASED [None]
  - DEVICE LEAKAGE [None]
